FAERS Safety Report 24740009 (Version 3)
Quarter: 2025Q2

REPORT INFORMATION
  Report Type: Report from Study
  Country: US (occurrence: US)
  Receive Date: 20241216
  Receipt Date: 20250425
  Transmission Date: 20250717
  Serious: Yes (Hospitalization)
  Sender: TAIHO ONCOLOGY INC
  Company Number: US-TAIHOP-2024-011968

PATIENT
  Sex: Female

DRUGS (2)
  1. INQOVI [Suspect]
     Active Substance: CEDAZURIDINE\DECITABINE
     Indication: Myelodysplastic syndrome
     Dosage: CYCLE UNKNOWN, ON DAYS 1-5 OF A 28 DAY CYCLE
     Route: 048
     Dates: start: 20241004
  2. INQOVI [Suspect]
     Active Substance: CEDAZURIDINE\DECITABINE
     Indication: Acute myeloid leukaemia

REACTIONS (4)
  - Overdose [Unknown]
  - Illness [Unknown]
  - Fatigue [Unknown]
  - Product use in unapproved indication [Unknown]
